FAERS Safety Report 8839824 (Version 1)
Quarter: 2012Q4

REPORT INFORMATION
  Report Type: 
  Country: US (occurrence: US)
  Receive Date: 20121015
  Receipt Date: 20121015
  Transmission Date: 20130627
  Serious: No
  Sender: FDA-Public Use
  Company Number: US-BRISTOL-MYERS SQUIBB COMPANY-16380297

PATIENT
  Age: 94 Year
  Sex: Female
  Weight: 76 kg

DRUGS (1)
  1. KENALOG-40 [Suspect]
     Indication: HYPERSENSITIVITY
     Dates: start: 20120105

REACTIONS (3)
  - Agitation [Unknown]
  - Irritability [Unknown]
  - Feeling abnormal [Unknown]
